FAERS Safety Report 16887823 (Version 1)
Quarter: 2019Q4

REPORT INFORMATION
  Report Type: Spontaneous
  Country: CA (occurrence: CA)
  Receive Date: 20191005
  Receipt Date: 20191005
  Transmission Date: 20200122
  Serious: Yes (Other)
  Sender: FDA-Public Use
  Company Number: CA-TEVA-2019-CA-1115893

PATIENT
  Age: 68 Year
  Sex: Female
  Weight: 60.38 kg

DRUGS (2)
  1. LORAZEPAM. [Concomitant]
     Active Substance: LORAZEPAM
  2. HALOPERIDOL. [Suspect]
     Active Substance: HALOPERIDOL
     Indication: PRODUCT USED FOR UNKNOWN INDICATION
     Route: 065

REACTIONS (9)
  - Medication error [Unknown]
  - Movement disorder [Unknown]
  - Hallucination [Unknown]
  - Tremor [Unknown]
  - Amnesia [Unknown]
  - Memory impairment [Unknown]
  - Dysphonia [Unknown]
  - Muscle twitching [Unknown]
  - Restlessness [Unknown]
